FAERS Safety Report 6895284-4 (Version None)
Quarter: 2010Q3

REPORT INFORMATION
  Report Type: 
  Country: None (occurrence: None)
  Receive Date: 20100802
  Receipt Date: 20100728
  Transmission Date: 20110219
  Serious: Yes (Hospitalization, Disabling, Other)
  Sender: FDA-Public Use
  Company Number: US-MERCK-1006USA03669

PATIENT
  Age: 75 Year
  Sex: Female
  Weight: 72 kg

DRUGS (2)
  1. COZAAR [Suspect]
     Indication: HYPERTENSION
     Route: 048
     Dates: start: 20100426, end: 20100511
  2. METFORMIN [Concomitant]
     Route: 065

REACTIONS (5)
  - ANXIETY [None]
  - DRUG INTOLERANCE [None]
  - HYPERTENSION [None]
  - NERVOUSNESS [None]
  - PRURITUS [None]
